FAERS Safety Report 6765973-0 (Version None)
Quarter: 2010Q2

REPORT INFORMATION
  Report Type: 
  Country: None (occurrence: None)
  Receive Date: 20100609
  Receipt Date: 20100528
  Transmission Date: 20101027
  Serious: Yes (Death, Hospitalization)
  Sender: FDA-Public Use
  Company Number: 2008-04134

PATIENT
  Age: 74 Year
  Sex: Male
  Weight: 56 kg

DRUGS (19)
  1. VELCADE [Suspect]
     Indication: MANTLE CELL LYMPHOMA
     Dosage: 1.3 MG/M2, INTRAVENOUS
     Route: 042
     Dates: start: 20080822, end: 20080901
  2. MABTHERA (RITUXIMAB) INJECTION [Suspect]
     Indication: MANTLE CELL LYMPHOMA
     Dosage: 750 MG, INTRAVENOUS
     Route: 042
  3. NEUPOGEN [Suspect]
     Indication: MANTLE CELL LYMPHOMA
     Dosage: 300 UG
     Dates: start: 20080829, end: 20080903
  4. CHLORAMBUCIL (CHLORAMBUCIL) ORAL DRUG UNSPECIFIED FORM [Suspect]
     Indication: MANTLE CELL LYMPHOMA
     Dosage: 12 MG
     Dates: start: 20080910, end: 20080919
  5. DEXAMETHASONE TAB [Suspect]
     Indication: MANTLE CELL LYMPHOMA
  6. EPREX [Concomitant]
  7. FIXICAL (CALCIUM CARBONATE) [Concomitant]
  8. RANITIDINE [Concomitant]
  9. FENOFIBRATE [Concomitant]
  10. PERIDYS (DOMPERIDONE) [Concomitant]
  11. PROSCAR [Concomitant]
  12. FLUCONAZOLE [Concomitant]
  13. XANAX [Concomitant]
  14. TRAMADOL HCL [Concomitant]
  15. AMITRIPTYLINE HCL [Concomitant]
  16. PRIMPERAN TAB [Concomitant]
  17. VALACYCLOVIR HCL [Concomitant]
  18. OXYCONTIN [Concomitant]
  19. OXYCODONE HCL [Concomitant]

REACTIONS (1)
  - GENERAL PHYSICAL HEALTH DETERIORATION [None]
